FAERS Safety Report 16476892 (Version 9)
Quarter: 2021Q1

REPORT INFORMATION
  Report Type: Other
  Country: IT (occurrence: IT)
  Receive Date: 20190626
  Receipt Date: 20210331
  Transmission Date: 20210419
  Serious: Yes (Hospitalization, Other)
  Sender: FDA-Public Use
  Company Number: IT-ROCHE-2168226

PATIENT
  Age: 65 Year
  Sex: Female
  Weight: 55 kg

DRUGS (36)
  1. PANTOPRAZOLE [Concomitant]
     Active Substance: PANTOPRAZOLE
     Dosage: ONGOING = CHECKED
     Dates: start: 20191015
  2. TACHIPIRINA [Concomitant]
     Active Substance: ACETAMINOPHEN
     Dosage: ONGOING = CHECKED
     Dates: start: 20200402
  3. CEFEPIME [Concomitant]
     Active Substance: CEFEPIME HYDROCHLORIDE
  4. ENAPREN [Concomitant]
     Active Substance: ENALAPRIL MALEATE
  5. TRASTUZUMAB EMTANSINE [Suspect]
     Active Substance: ADO-TRASTUZUMAB EMTANSINE
     Indication: HER2 POSITIVE BREAST CANCER
     Route: 042
     Dates: start: 20191009
  6. SOLDESAM [Concomitant]
     Active Substance: DEXAMETHASONE
     Dosage: ONGOING = CHECKED
     Dates: start: 20180502
  7. DEXAMETHASONE. [Concomitant]
     Active Substance: DEXAMETHASONE
     Dates: start: 20180507, end: 20181002
  8. CACIT (ITALY) [Concomitant]
     Dates: start: 20180727
  9. DOCETAXEL. [Suspect]
     Active Substance: DOCETAXEL
     Indication: HER2 POSITIVE BREAST CANCER
     Dosage: LAST DOSE ON 19/JUN/2018
     Route: 042
     Dates: start: 20180507
  10. PACLITAXEL. [Suspect]
     Active Substance: PACLITAXEL
     Indication: HER2 POSITIVE BREAST CANCER
     Dosage: LAST DOSE ON 16/OCT/2018
     Route: 042
     Dates: start: 20180731
  11. RAMIPRIL. [Concomitant]
     Active Substance: RAMIPRIL
     Indication: HYPERTENSION
     Dosage: ONGOING = CHECKED
     Dates: start: 20190701
  12. UREA. [Concomitant]
     Active Substance: UREA
     Indication: SKIN TOXICITY
     Dosage: ONGOING = CHECKED
     Dates: start: 20200415
  13. ZOLOFT [Concomitant]
     Active Substance: SERTRALINE HYDROCHLORIDE
     Dosage: ONGOING = CHECKED
     Dates: start: 20160803
  14. PLASIL [Concomitant]
     Active Substance: METOCLOPRAMIDE HYDROCHLORIDE
     Dates: start: 20180625, end: 20180731
  15. DENOSUMAB [Suspect]
     Active Substance: DENOSUMAB
     Indication: BREAST CANCER
     Dosage: OTHER IMMUNOTHERAPY
     Route: 058
     Dates: start: 20181009
  16. TEICOPLANINA [Concomitant]
     Active Substance: TEICOPLANIN
  17. FLUCONAZOLO [Concomitant]
  18. DUROGESIC [Concomitant]
     Active Substance: FENTANYL
  19. LAPATINIB [Suspect]
     Active Substance: LAPATINIB
     Indication: HER2 POSITIVE BREAST CANCER
     Route: 048
     Dates: start: 20200220
  20. ARIXTRA [Concomitant]
     Active Substance: FONDAPARINUX SODIUM
     Indication: THROMBOSIS
     Dosage: ONGOING = NOT CHECKED
     Dates: start: 20200806, end: 20210224
  21. RANITIDINE. [Concomitant]
     Active Substance: RANITIDINE
     Dates: start: 20180507, end: 20181002
  22. LEVOFLOXACIN. [Concomitant]
     Active Substance: LEVOFLOXACIN
  23. PERTUZUMAB. [Suspect]
     Active Substance: PERTUZUMAB
     Indication: BREAST CANCER
  24. TRASTUZUMAB. [Suspect]
     Active Substance: TRASTUZUMAB
     Indication: HER2 POSITIVE BREAST CANCER
     Dosage: LAST DOSE ON 29/MAY/2018
     Route: 042
     Dates: start: 20180507
  25. BISOPROLOLO [Concomitant]
     Active Substance: BISOPROLOL FUMARATE
     Indication: HYPERTENSION
     Dosage: ONGOING = CHECKED
     Dates: start: 20190701
  26. AROMASINE [Suspect]
     Active Substance: EXEMESTANE
     Indication: HER2 POSITIVE BREAST CANCER
     Route: 048
     Dates: start: 20190213, end: 20191030
  27. CHLORPHENIRAMINE. [Concomitant]
     Active Substance: CHLORPHENIRAMINE
     Dosage: ONGOING = CHECKED
     Dates: start: 20180507
  28. NATECAL [Concomitant]
     Active Substance: CALCIUM CARBONATE\CHOLECALCIFEROL
     Dosage: ONGOING = CHECKED
     Dates: start: 20190615
  29. AMIKACINA [Concomitant]
     Active Substance: AMIKACIN SULFATE
  30. MYCOSTATIN [Concomitant]
     Active Substance: NYSTATIN
  31. CAPECITABINE. [Suspect]
     Active Substance: CAPECITABINE
     Indication: HER2 POSITIVE BREAST CANCER
     Dosage: MOST RECENT DOSE OF CAPECITABINE WAS RECEIVED ON 01/OCT/2020.
     Route: 048
     Dates: start: 20200220
  32. PERTUZUMAB. [Suspect]
     Active Substance: PERTUZUMAB
     Indication: HER2 POSITIVE BREAST CANCER
     Dosage: LAST DOSE ON 29/MAY/2018
     Route: 042
     Dates: start: 20180507
  33. EUTIROX [Concomitant]
     Active Substance: LEVOTHYROXINE SODIUM
     Dosage: ONGOING = CHECKED
  34. DIBASE [Concomitant]
     Active Substance: CHOLECALCIFEROL
     Dosage: ONGOING = CHECKED
     Dates: start: 20180727
  35. CACIT (ITALY) [Concomitant]
     Dates: start: 20180915, end: 20190615
  36. POLASE [ASPARTIC ACID;MAGNESIUM CITRATE;POTASSIUM GLUCONATE] [Concomitant]

REACTIONS (16)
  - Febrile neutropenia [Recovered/Resolved]
  - Diarrhoea [Recovered/Resolved]
  - Nausea [Recovered/Resolved]
  - Hypokalaemia [Recovered/Resolved]
  - Diarrhoea [Recovered/Resolved]
  - Nausea [Recovered/Resolved]
  - Performance status decreased [Recovered/Resolved]
  - Dysphagia [Recovered/Resolved]
  - Palmar-plantar erythrodysaesthesia syndrome [Recovered/Resolved]
  - Arthralgia [Recovered/Resolved]
  - Dysgeusia [Recovered/Resolved]
  - Dysgeusia [Recovered/Resolved]
  - Diarrhoea [Recovered/Resolved]
  - Fatigue [Recovered/Resolved]
  - Performance status decreased [Recovered/Resolved]
  - Dysaesthesia [Recovered/Resolved]

NARRATIVE: CASE EVENT DATE: 20180615
